FAERS Safety Report 16155763 (Version 2)
Quarter: 2019Q2

REPORT INFORMATION
  Report Type: Report from Study
  Country: IT (occurrence: IT)
  Receive Date: 20190404
  Receipt Date: 20190530
  Transmission Date: 20190711
  Serious: Yes (Hospitalization)
  Sender: FDA-Public Use
  Company Number: IT-ACCORD-118501

PATIENT
  Age: 78 Year
  Sex: Male

DRUGS (11)
  1. QUETIAPINE/QUETIAPINE FUMARATE [Concomitant]
  2. ACETYLSALICYLIC ACID [Suspect]
     Active Substance: ASPIRIN
     Indication: ATRIAL FIBRILLATION
     Route: 048
     Dates: start: 20180101, end: 20190107
  3. TIOTROPIUM [Concomitant]
     Active Substance: TIOTROPIUM
  4. CLOPIDOGREL [Suspect]
     Active Substance: CLOPIDOGREL BISULFATE
     Indication: ATRIAL FIBRILLATION
     Route: 048
     Dates: start: 20180101, end: 20190107
  5. FOLIN [Concomitant]
     Active Substance: FOLIC ACID
     Dosage: 5 MG
  6. BISOPROLOL [Concomitant]
     Active Substance: BISOPROLOL
  7. PANTOPRAZOLE [Concomitant]
     Active Substance: PANTOPRAZOLE
  8. ATORVASTATIN [Concomitant]
     Active Substance: ATORVASTATIN
  9. LORAZEPAM. [Concomitant]
     Active Substance: LORAZEPAM
  10. IVABRADINE/IVABRADINE HYDROCHLORIDE [Concomitant]
  11. PRADAXA [Suspect]
     Active Substance: DABIGATRAN ETEXILATE MESYLATE
     Indication: ATRIAL FIBRILLATION
     Dosage: 110 MG
     Route: 048
     Dates: start: 20180101, end: 20190107

REACTIONS (2)
  - Melaena [Recovering/Resolving]
  - Intestinal haemorrhage [Recovering/Resolving]

NARRATIVE: CASE EVENT DATE: 20190107
